FAERS Safety Report 12849261 (Version 2)
Quarter: 2016Q4

REPORT INFORMATION
  Report Type: Spontaneous
  Country: DE (occurrence: DE)
  Receive Date: 20161014
  Receipt Date: 20161221
  Transmission Date: 20170207
  Serious: Yes (Disabling)
  Sender: FDA-Public Use
  Company Number: DE-TEVA-698890GER

PATIENT
  Sex: Female

DRUGS (3)
  1. CIPROFLOXACIN. [Suspect]
     Active Substance: CIPROFLOXACIN
     Indication: SINUSITIS
  2. CIPROFLOXACIN. [Suspect]
     Active Substance: CIPROFLOXACIN
     Indication: BRONCHITIS
     Dosage: 1000 MILLIGRAM DAILY;
     Route: 048
     Dates: start: 1981, end: 1981
  3. LEVOFLOXACIN. [Suspect]
     Active Substance: LEVOFLOXACIN
     Dosage: 1 DOSAGE FORMS DAILY;
     Route: 048

REACTIONS (15)
  - Muscle rupture [Not Recovered/Not Resolved]
  - Condition aggravated [Unknown]
  - Inflammation [Unknown]
  - Fall [Unknown]
  - Tenosynovitis [Not Recovered/Not Resolved]
  - Muscle rupture [Unknown]
  - Foot deformity [Unknown]
  - Myalgia [Not Recovered/Not Resolved]
  - Tendon rupture [Not Recovered/Not Resolved]
  - Osteoarthritis [Unknown]
  - Atrial fibrillation [Not Recovered/Not Resolved]
  - Balance disorder [Not Recovered/Not Resolved]
  - Tendon disorder [Unknown]
  - Gait disturbance [Not Recovered/Not Resolved]
  - Rotator cuff syndrome [Unknown]

NARRATIVE: CASE EVENT DATE: 1981
